FAERS Safety Report 25842398 (Version 1)
Quarter: 2025Q3

REPORT INFORMATION
  Report Type: Spontaneous
  Country: CN (occurrence: CN)
  Receive Date: 20250924
  Receipt Date: 20250924
  Transmission Date: 20251021
  Serious: Yes (Other)
  Sender: COHERUS
  Company Number: CN-MLMSERVICE-20250910-PI641869-00255-1-00

PATIENT

DRUGS (15)
  1. TORIPALIMAB [Suspect]
     Active Substance: TORIPALIMAB
     Indication: Rectosigmoid cancer metastatic
     Dosage: 240 MG, Q3W
     Route: 041
     Dates: start: 202407
  2. TORIPALIMAB [Suspect]
     Active Substance: TORIPALIMAB
     Indication: Metastases to lung
  3. TORIPALIMAB [Suspect]
     Active Substance: TORIPALIMAB
     Indication: Metastases to bladder
  4. TUCIDINOSTAT [Suspect]
     Active Substance: TUCIDINOSTAT
     Indication: Rectosigmoid cancer metastatic
     Dosage: 30 MG, 2/WEEK
     Route: 048
     Dates: start: 202407
  5. TUCIDINOSTAT [Suspect]
     Active Substance: TUCIDINOSTAT
     Indication: Metastases to lung
  6. TUCIDINOSTAT [Suspect]
     Active Substance: TUCIDINOSTAT
     Indication: Metastases to bladder
  7. FRUQUINTINIB [Suspect]
     Active Substance: FRUQUINTINIB
     Indication: Rectosigmoid cancer metastatic
     Dosage: 5 MG, QOD
     Route: 048
     Dates: start: 202407
  8. FRUQUINTINIB [Suspect]
     Active Substance: FRUQUINTINIB
     Indication: Metastases to lung
  9. FRUQUINTINIB [Suspect]
     Active Substance: FRUQUINTINIB
     Indication: Metastases to bladder
  10. RALTITREXED [Suspect]
     Active Substance: RALTITREXED
     Indication: Rectosigmoid cancer metastatic
     Dosage: 4 MG, Q3W, TREATMENT FOR SIX CYCLES
     Route: 041
     Dates: start: 202407
  11. RALTITREXED [Suspect]
     Active Substance: RALTITREXED
     Indication: Metastases to lung
  12. RALTITREXED [Suspect]
     Active Substance: RALTITREXED
     Indication: Metastases to bladder
  13. PACLITAXEL [Suspect]
     Active Substance: PACLITAXEL
     Indication: Rectosigmoid cancer metastatic
     Dosage: 200 MG, Q3W, TREATMENT FOR SIX CYCLES
     Route: 041
     Dates: start: 202407
  14. PACLITAXEL [Suspect]
     Active Substance: PACLITAXEL
     Indication: Metastases to lung
  15. PACLITAXEL [Suspect]
     Active Substance: PACLITAXEL
     Indication: Metastases to bladder

REACTIONS (2)
  - Myelosuppression [Recovering/Resolving]
  - Off label use [Unknown]

NARRATIVE: CASE EVENT DATE: 20240701
